FAERS Safety Report 11148966 (Version 1)
Quarter: 2015Q2

REPORT INFORMATION
  Report Type: Spontaneous
  Country: NL (occurrence: None)
  Receive Date: 20150527
  Receipt Date: 20150527
  Transmission Date: 20150821
  Serious: Yes (Hospitalization)
  Sender: FDA-Public Use
  Company Number: TIR-04582

PATIENT
  Age: 59 Year
  Sex: Female

DRUGS (2)
  1. UNSPECIFIED LEVOTHYROXINE (LEVOTHYROXINE) [Suspect]
     Active Substance: LEVOTHYROXINE
     Indication: HYPOTHYROIDISM
  2. DEXAMETHASONE (DEXAMETHASONE) [Suspect]
     Active Substance: DEXAMETHASONE

REACTIONS (5)
  - Hyperglycaemia [None]
  - Post procedural complication [None]
  - Glioblastoma multiforme [None]
  - Ballismus [None]
  - Hyperthyroidism [None]
